FAERS Safety Report 6048315-8 (Version None)
Quarter: 2009Q1

REPORT INFORMATION
  Report Type: 
  Country: None (occurrence: None)
  Receive Date: 20090123
  Receipt Date: 20090116
  Transmission Date: 20090719
  Serious: Yes (Other)
  Sender: FDA-Public Use
  Company Number: US-PFIZER INC-2009158503

PATIENT
  Sex: Female
  Weight: 76.19 kg

DRUGS (7)
  1. CADUET [Suspect]
     Indication: HYPERTENSION
     Dosage: UNK MG, 1X/DAY
     Dates: start: 20080101
  2. CADUET [Suspect]
     Indication: BLOOD CHOLESTEROL INCREASED
  3. AVANDAMET [Concomitant]
     Indication: DIABETES MELLITUS
     Dosage: UNK
  4. GLIPIZIDE [Concomitant]
     Indication: DIABETES MELLITUS
     Dosage: UNK
  5. DRUG, UNSPECIFIED [Concomitant]
     Indication: CEREBROVASCULAR ACCIDENT
     Dosage: UNK
  6. LOVENOX [Concomitant]
     Indication: CEREBROVASCULAR ACCIDENT
     Dosage: UNK
  7. FOLIC ACID [Concomitant]

REACTIONS (7)
  - BLOOD GLUCOSE INCREASED [None]
  - DYSURIA [None]
  - FATIGUE [None]
  - HYPOTENSION [None]
  - MALAISE [None]
  - TRANSIENT ISCHAEMIC ATTACK [None]
  - VOMITING [None]
